FAERS Safety Report 8416267-9 (Version None)
Quarter: 2012Q2

REPORT INFORMATION
  Report Type: 
  Country: None (occurrence: None)
  Receive Date: 20120606
  Receipt Date: 20120525
  Transmission Date: 20120825
  Serious: Yes (Death)
  Sender: FDA-Public Use
  Company Number: US-ELI_LILLY_AND_COMPANY-US201205009290

PATIENT
  Sex: Female

DRUGS (8)
  1. CYMBALTA [Suspect]
     Dosage: 60 MG, QD
  2. CLONIDINE [Concomitant]
  3. IBUPROFEN [Concomitant]
  4. CYMBALTA [Suspect]
     Indication: DEPRESSION
     Dosage: 60 MG, QD
     Dates: start: 20070525
  5. AMBIEN [Concomitant]
  6. CLARITIN [Concomitant]
  7. SYNTHROID [Concomitant]
  8. FIORICET [Concomitant]

REACTIONS (1)
  - DEATH [None]
